FAERS Safety Report 7199196-0 (Version None)
Quarter: 2010Q4

REPORT INFORMATION
  Report Type: 
  Country: None (occurrence: None)
  Receive Date: 20101215
  Receipt Date: 20101202
  Transmission Date: 20110411
  Serious: Yes (Other)
  Sender: FDA-Public Use
  Company Number: 2010PL000176

PATIENT
  Age: 32 Year
  Sex: Female

DRUGS (4)
  1. LOTRONEX [Suspect]
     Indication: IRRITABLE BOWEL SYNDROME
     Dosage: 1 MG;QD;PO
     Route: 048
     Dates: start: 20080101, end: 20101126
  2. NASACORT AQ [Concomitant]
  3. AZELASTINE HCL [Concomitant]
  4. LOESTRIN 1.5/30 [Concomitant]

REACTIONS (7)
  - ABDOMINAL PAIN [None]
  - ABDOMINAL PAIN LOWER [None]
  - COLITIS ISCHAEMIC [None]
  - CONSTIPATION [None]
  - HAEMATOCHEZIA [None]
  - HAEMORRHOIDAL HAEMORRHAGE [None]
  - RECTAL HAEMORRHAGE [None]
